FAERS Safety Report 8976322 (Version 1)
Quarter: 2012Q4

REPORT INFORMATION
  Report Type: 
  Country: US (occurrence: US)
  Receive Date: 20121220
  Receipt Date: 20121220
  Transmission Date: 20130627
  Serious: Yes (Other)
  Sender: FDA-Public Use
  Company Number: US-PFIZER INC-2012317132

PATIENT
  Age: 68 Year
  Sex: Male
  Weight: 93.88 kg

DRUGS (1)
  1. REVATIO [Suspect]
     Indication: PULMONARY HYPERTENSION
     Dosage: 20 mg, 2x/day
     Dates: start: 2012, end: 201211

REACTIONS (1)
  - Cardiovascular disorder [Unknown]
